FAERS Safety Report 9401507 (Version 1)
Quarter: 2013Q3

REPORT INFORMATION
  Report Type: Report from Study
  Country: PE (occurrence: PE)
  Receive Date: 20130716
  Receipt Date: 20130716
  Transmission Date: 20140515
  Serious: Yes (Other)
  Sender: FDA-Public Use
  Company Number: PE-ROCHE-1248214

PATIENT
  Age: 40 Year
  Sex: Female

DRUGS (7)
  1. TRASTUZUMAB [Suspect]
     Indication: BREAST CANCER
     Dosage: LOADING DOSE
     Route: 042
     Dates: start: 20081205
  2. TRASTUZUMAB [Suspect]
     Route: 042
  3. TRASTUZUMAB [Suspect]
     Dosage: TRASTUZUMAB +PACLITAXEL: 80 MG/M2
     Route: 042
  4. PACLITAXEL [Suspect]
     Indication: BREAST CANCER
     Dosage: TRASTUZUMAB +PACLITAXEL: 80 MG/M2
     Route: 042
     Dates: start: 20090119
  5. EPIRUBICIN [Concomitant]
     Route: 065
     Dates: start: 20090526
  6. FLUOROURACIL [Concomitant]
     Route: 065
     Dates: start: 20090526
  7. CYCLOPHOSPHAMIDE [Concomitant]
     Route: 065
     Dates: start: 20090526

REACTIONS (1)
  - Alanine aminotransferase increased [Recovered/Resolved]
